FAERS Safety Report 5766620-7 (Version None)
Quarter: 2008Q2

REPORT INFORMATION
  Report Type: 
  Country: None (occurrence: None)
  Receive Date: 20080612
  Receipt Date: 20080604
  Transmission Date: 20081010
  Serious: Yes (Hospitalization)
  Sender: FDA-Public Use
  Company Number: JP-WYE-H04416408

PATIENT
  Sex: Female

DRUGS (1)
  1. HYPEN [Suspect]
     Indication: ARTHRALGIA
     Route: 048
     Dates: start: 20080317, end: 20080324

REACTIONS (1)
  - DRUG RASH WITH EOSINOPHILIA AND SYSTEMIC SYMPTOMS [None]
